FAERS Safety Report 6230258-8 (Version None)
Quarter: 2009Q2

REPORT INFORMATION
  Report Type: 
  Country: None (occurrence: None)
  Receive Date: 20090615
  Receipt Date: 20090604
  Transmission Date: 20091009
  Serious: Yes (Death)
  Sender: FDA-Public Use
  Company Number: TW-BAXTER-2009BH009378

PATIENT
  Age: 56 Year
  Sex: Female

DRUGS (5)
  1. DIANEAL [Suspect]
     Indication: PERITONEAL DIALYSIS
     Route: 033
     Dates: start: 20090401
  2. DIANEAL [Suspect]
     Route: 033
     Dates: start: 20090401
  3. DIANEAL [Suspect]
     Route: 033
     Dates: start: 20090401
  4. DIANEAL [Suspect]
     Route: 033
     Dates: start: 20090401
  5. DIANEAL [Suspect]
     Route: 033
     Dates: start: 20090301, end: 20090401

REACTIONS (1)
  - DEATH [None]
